FAERS Safety Report 5400275-6 (Version None)
Quarter: 2007Q3

REPORT INFORMATION
  Report Type: 
  Country: None (occurrence: None)
  Receive Date: 20070730
  Receipt Date: 20070726
  Transmission Date: 20080115
  Serious: Yes (Other)
  Sender: FDA-Public Use
  Company Number: JP-BRISTOL-MYERS SQUIBB COMPANY-13859566

PATIENT
  Sex: Female

DRUGS (2)
  1. TAXOL [Suspect]
     Indication: UTERINE CANCER
     Route: 041
  2. PARAPLATIN [Suspect]
     Indication: UTERINE CANCER
     Route: 041

REACTIONS (1)
  - LEUKAEMIA [None]
